FAERS Safety Report 24638799 (Version 1)
Quarter: 2024Q4

REPORT INFORMATION
  Report Type: Spontaneous
  Country: PL (occurrence: PL)
  Receive Date: 20241119
  Receipt Date: 20241119
  Transmission Date: 20250114
  Serious: Yes (Hospitalization)
  Sender: TEVA
  Company Number: None

PATIENT
  Sex: Female

DRUGS (4)
  1. LAMOTRIGINE [Suspect]
     Active Substance: LAMOTRIGINE
     Indication: Product used for unknown indication
     Dosage: DOSAGE: PATIENT HAS BEEN TAKING MEDICATION FOR 4 WEEKS.
     Route: 048
  2. HALOPERIDOL [Suspect]
     Active Substance: HALOPERIDOL
     Indication: Product used for unknown indication
     Dosage: DOSAGE: PATIENT HAS BEEN TAKING MEDICATION FOR 4 WEEKS.
     Route: 048
  3. HALOPERIDOL DECANOATE [Suspect]
     Active Substance: HALOPERIDOL DECANOATE
     Indication: Product used for unknown indication
     Dosage: DOSAGE: UNKNOWN. SOLUTION FOR INJECTION
     Route: 065
     Dates: start: 20201216, end: 20201216
  4. QUETIAPINE FUMARATE [Suspect]
     Active Substance: QUETIAPINE FUMARATE
     Indication: Product used for unknown indication
     Dosage: DOSAGE: PATIENT HAS BEEN TAKING MEDICATION FOR 4 WEEKS.KWETAPLEX XR
     Route: 048

REACTIONS (1)
  - Antidiuretic hormone abnormality [Unknown]
